FAERS Safety Report 4918865-3 (Version None)
Quarter: 2006Q1

REPORT INFORMATION
  Report Type: 
  Country: None (occurrence: None)
  Receive Date: 20060222
  Receipt Date: 20050830
  Transmission Date: 20060701
  Serious: Yes (Hospitalization, Other)
  Sender: FDA-Public Use
  Company Number: US-MERCK-0508USA05018

PATIENT
  Age: 68 Year
  Sex: Male
  Weight: 91 kg

DRUGS (3)
  1. VIOXX [Suspect]
     Indication: ARTHRITIS
     Route: 048
     Dates: end: 20040701
  2. VIOXX [Suspect]
     Indication: BACK PAIN
     Route: 048
     Dates: end: 20040701
  3. ASPIRIN [Concomitant]
     Route: 065

REACTIONS (23)
  - ANGINA UNSTABLE [None]
  - ARTERIAL INSUFFICIENCY [None]
  - BACK PAIN [None]
  - BENIGN PROSTATIC HYPERPLASIA [None]
  - CHEST PAIN [None]
  - CONGESTIVE CARDIOMYOPATHY [None]
  - CONSTIPATION [None]
  - DIVERTICULUM [None]
  - DYSPNOEA [None]
  - FOOT FRACTURE [None]
  - HAEMORRHOIDS [None]
  - HYPOTENSION [None]
  - MIGRAINE [None]
  - MUSCLE SPASMS [None]
  - MYOCARDIAL INFARCTION [None]
  - OEDEMA PERIPHERAL [None]
  - PAIN IN EXTREMITY [None]
  - POST LAMINECTOMY SYNDROME [None]
  - PROSTATITIS [None]
  - STOMACH DISCOMFORT [None]
  - SYNCOPE [None]
  - VENTRICULAR DYSFUNCTION [None]
  - WEIGHT INCREASED [None]
